FAERS Safety Report 14926786 (Version 1)
Quarter: 2018Q2

REPORT INFORMATION
  Report Type: Spontaneous
  Country: IT (occurrence: IT)
  Receive Date: 20180523
  Receipt Date: 20180523
  Transmission Date: 20180711
  Serious: Yes (Other)
  Sender: FDA-Public Use
  Company Number: IT-ASTRAZENECA-2018SE64458

PATIENT
  Age: 2 Year
  Sex: Male

DRUGS (3)
  1. LUCEN [Suspect]
     Active Substance: ESOMEPRAZOLE
     Indication: ACCIDENTAL EXPOSURE TO PRODUCT BY CHILD
     Dosage: 20 MG, 4 DF, NON-AZ
     Route: 048
     Dates: start: 20180506, end: 20180506
  2. VENLAFAXINE [Suspect]
     Active Substance: VENLAFAXINE HYDROCHLORIDE
     Indication: ACCIDENTAL EXPOSURE TO PRODUCT
     Dosage: 2.0DF ONCE/SINGLE ADMINISTRATION
     Route: 048
     Dates: start: 20180506, end: 20180506
  3. NEO-LOTAN PLUS [Suspect]
     Active Substance: HYDROCHLOROTHIAZIDE\LOSARTAN POTASSIUM
     Indication: ACCIDENTAL EXPOSURE TO PRODUCT
     Dosage: 50 MG + 12.5 MG, 2 DF, UNKNOWN
     Route: 048
     Dates: start: 20180506, end: 20180506

REACTIONS (2)
  - Toxicity to various agents [Recovering/Resolving]
  - Poisoning [Recovering/Resolving]

NARRATIVE: CASE EVENT DATE: 20180506
